FAERS Safety Report 9238275 (Version 2)
Quarter: 2013Q2

REPORT INFORMATION
  Report Type: Spontaneous
  Country: US (occurrence: None)
  Receive Date: 20130415
  Receipt Date: 20130517
  Transmission Date: 20140414
  Serious: Yes (Other)
  Sender: FDA-Public Use
  Company Number: ACO_34792_2013

PATIENT
  Age: 54 Year
  Sex: Female

DRUGS (4)
  1. AMPYRA (DALFAMPRIDINE) TABLET, 10MG [Suspect]
     Indication: GAIT DISTURBANCE
     Dates: start: 20120214, end: 201302
  2. AMANTADINE (AMANTADINE) [Concomitant]
  3. OXYBUTYNIN (OXYBUTYNIN) [Concomitant]
  4. BETASERON (INTERFERON BETA-1B) [Concomitant]

REACTIONS (3)
  - Upper limb fracture [None]
  - Fall [None]
  - Upper limb fracture [None]
